FAERS Safety Report 7765456-5 (Version None)
Quarter: 2011Q3

REPORT INFORMATION
  Report Type: 
  Country: None (occurrence: None)
  Receive Date: 20110921
  Receipt Date: 20110914
  Transmission Date: 20111222
  Serious: No
  Sender: FDA-Public Use
  Company Number: ES-PFIZER INC-2011210546

PATIENT
  Age: 57 Year
  Sex: Female

DRUGS (1)
  1. SUTENT [Suspect]
     Indication: RENAL CELL CARCINOMA
     Dosage: 50 MG, UNK

REACTIONS (4)
  - MUCOSAL INFLAMMATION [None]
  - ASTHENIA [None]
  - NAUSEA [None]
  - DECREASED APPETITE [None]
